FAERS Safety Report 22958942 (Version 2)
Quarter: 2023Q4

REPORT INFORMATION
  Report Type: Spontaneous
  Country: JP (occurrence: JP)
  Receive Date: 20230919
  Receipt Date: 20231124
  Transmission Date: 20240110
  Serious: Yes (Other)
  Sender: FDA-Public Use
  Company Number: JP-GSK-JP2023JPN094676

PATIENT

DRUGS (25)
  1. DAPRODUSTAT [Suspect]
     Active Substance: DAPRODUSTAT
     Indication: Nephrogenic anaemia
     Dosage: 4 MG, 1D, MORNING
     Route: 048
     Dates: start: 20230628, end: 20230709
  2. DAPRODUSTAT [Suspect]
     Active Substance: DAPRODUSTAT
     Dosage: 6 MG, 1D
     Route: 048
     Dates: start: 20230710
  3. DAPRODUSTAT [Suspect]
     Active Substance: DAPRODUSTAT
     Dosage: 4 MG
     Route: 048
     Dates: start: 20230715, end: 20230816
  4. DIAZEPAM [Concomitant]
     Active Substance: DIAZEPAM
     Dosage: 2 MG, 1D, 1 TAB IN EVENING
     Route: 048
  5. TOFISOPAM [Concomitant]
     Active Substance: TOFISOPAM
     Dosage: 50 MG, 1D, 1 TAB IN EVENING
     Route: 048
  6. PERPHENAZINE [Concomitant]
     Active Substance: PERPHENAZINE
     Dosage: 2 MG, 1D, 1 TAB IN EVENING
  7. LIVALO [Concomitant]
     Active Substance: PITAVASTATIN CALCIUM
     Dosage: 2 MG, 1D, 2 TAB IN EVENING
     Dates: start: 20200713
  8. CALCIUM CARBONATE\CHOLECALCIFEROL\MAGNESIUM CARBONATE [Concomitant]
     Active Substance: CALCIUM CARBONATE\CHOLECALCIFEROL\MAGNESIUM CARBONATE
     Dosage: UNK, QOD, 1 TAB IN MORNING
     Dates: start: 20210322
  9. DENOSUMAB [Concomitant]
     Active Substance: DENOSUMAB
     Dosage: UNK, ONCE A HALF YEAR
     Dates: start: 20210322
  10. CALCIUM POLYSTYRENE SULFONATE [Concomitant]
     Active Substance: CALCIUM POLYSTYRENE SULFONATE
     Dosage: 25 G, 1D, 1 SACHET IN MORNING
     Dates: start: 20230313
  11. CALCIUM CHLORIDE\POTASSIUM CHLORIDE\SODIUM CHLORIDE\SODIUM LACTATE\SOR [Concomitant]
     Active Substance: CALCIUM CHLORIDE\POTASSIUM CHLORIDE\SODIUM CHLORIDE\SODIUM LACTATE\SORBITOL
     Dosage: 250 ML
     Dates: start: 20230614
  12. CALCIUM CHLORIDE\POTASSIUM CHLORIDE\SODIUM CHLORIDE\SODIUM LACTATE\SOR [Concomitant]
     Active Substance: CALCIUM CHLORIDE\POTASSIUM CHLORIDE\SODIUM CHLORIDE\SODIUM LACTATE\SORBITOL
     Dosage: 250 ML
     Dates: start: 20230628
  13. CALCIUM CHLORIDE\POTASSIUM CHLORIDE\SODIUM CHLORIDE\SODIUM LACTATE\SOR [Concomitant]
     Active Substance: CALCIUM CHLORIDE\POTASSIUM CHLORIDE\SODIUM CHLORIDE\SODIUM LACTATE\SORBITOL
     Dosage: 250 ML
     Dates: start: 20230710
  14. MEYLON [Concomitant]
     Active Substance: SODIUM BICARBONATE
     Dosage: 20 ML
     Dates: start: 20230614
  15. MEYLON [Concomitant]
     Active Substance: SODIUM BICARBONATE
     Dosage: 20 ML
     Dates: start: 20230628
  16. MEYLON [Concomitant]
     Active Substance: SODIUM BICARBONATE
     Dosage: 20 ML
     Dates: start: 20230710
  17. IFENPRODIL [Concomitant]
     Active Substance: IFENPRODIL
     Dosage: 20 MG, TID, AFTER EACH MEAL
     Dates: start: 20230710
  18. CILOSTAZOL [Concomitant]
     Active Substance: CILOSTAZOL
     Indication: Prophylaxis
     Dosage: 50 MG, BID, AFTER BREAKFST AND DINNER
     Dates: start: 20230710, end: 20230828
  19. LANSOPRAZOLE [Concomitant]
     Active Substance: LANSOPRAZOLE
     Indication: Prophylaxis
     Dosage: 15 MG, 1D, AFTER BREAKFAST
     Dates: start: 20230710
  20. BETAHISTINE MESILATE [Concomitant]
     Active Substance: BETAHISTINE MESILATE
     Dosage: 6 MG, TID, AFTER EACH MEAL
     Dates: start: 20230614
  21. ADETPHOS [Concomitant]
     Active Substance: ADENOSINE TRIPHOSPHATE
     Dosage: 1 G, TID, AFTER EACH MEAL
     Dates: start: 20230614
  22. DARBEPOETIN ALFA [Concomitant]
     Active Substance: DARBEPOETIN ALFA
     Indication: Nephrogenic anaemia
     Dosage: 30 ?G, MO
     Route: 058
     Dates: start: 20221121
  23. DARBEPOETIN ALFA [Concomitant]
     Active Substance: DARBEPOETIN ALFA
     Dosage: 60 ?G, MO
     Route: 058
     Dates: start: 20230116
  24. DARBEPOETIN ALFA [Concomitant]
     Active Substance: DARBEPOETIN ALFA
     Dosage: 120 ?G, MO
     Route: 058
     Dates: start: 20230313, end: 20230612
  25. DARBEPOETIN ALFA [Concomitant]
     Active Substance: DARBEPOETIN ALFA
     Dosage: 120 ?G
     Route: 058
     Dates: start: 20230906

REACTIONS (3)
  - Pulmonary hypertension [Unknown]
  - Ovarian vein thrombosis [Unknown]
  - Fibrin D dimer increased [Recovering/Resolving]

NARRATIVE: CASE EVENT DATE: 20230710
